FAERS Safety Report 8976534 (Version 1)
Quarter: 2012Q4

REPORT INFORMATION
  Report Type: 
  Country: US (occurrence: US)
  Receive Date: 20121220
  Receipt Date: 20121220
  Transmission Date: 20130627
  Serious: Yes (Hospitalization)
  Sender: FDA-Public Use
  Company Number: US-JNJFOC-20121205942

PATIENT
  Sex: Male

DRUGS (2)
  1. REOPRO [Suspect]
     Indication: STENT PLACEMENT
     Route: 065
  2. EFFIENT [Suspect]
     Indication: STENT PLACEMENT
     Route: 065

REACTIONS (1)
  - Embolic stroke [Unknown]
